FAERS Safety Report 10589450 (Version 4)
Quarter: 2014Q4

REPORT INFORMATION
  Report Type: Report from Study
  Country: JP (occurrence: JP)
  Receive Date: 20141118
  Receipt Date: 20141212
  Transmission Date: 20150529
  Serious: Yes (Hospitalization)
  Sender: FDA-Public Use
  Company Number: JP-TAKEDA-2014TJP015534

PATIENT
  Age: 28 Year
  Sex: Male
  Weight: 59.3 kg

DRUGS (4)
  1. MLN0002 [Suspect]
     Active Substance: VEDOLIZUMAB
     Indication: COLITIS ULCERATIVE
     Dosage: 300 MG, UNK
     Route: 041
     Dates: start: 20141017, end: 20141029
  2. VEDOLIZUMAB [Suspect]
     Active Substance: VEDOLIZUMAB
     Indication: COLITIS ULCERATIVE
     Dosage: 300 MG, UNK
     Route: 041
     Dates: start: 20140811
  3. FERROUS SODIUM CITRATE [Concomitant]
     Dosage: 50 MG, BID
     Route: 048
     Dates: start: 20140827, end: 20141031
  4. ASACOL [Concomitant]
     Active Substance: MESALAMINE
     Indication: COLITIS ULCERATIVE
     Dosage: 1600 MG, TID
     Route: 048

REACTIONS (2)
  - Eosinophil count increased [Recovered/Resolved]
  - Abdominal pain upper [Recovered/Resolved]

NARRATIVE: CASE EVENT DATE: 20141029
